FAERS Safety Report 18971621 (Version 1)
Quarter: 2021Q1

REPORT INFORMATION
  Report Type: Other
  Country: CA (occurrence: CA)
  Receive Date: 20210304
  Receipt Date: 20210304
  Transmission Date: 20210420
  Serious: Yes (Death)
  Sender: FDA-Public Use
  Company Number: CA-CELLTRION INC.-2021CA002639

PATIENT

DRUGS (1)
  1. TRASTUZUMAB (UNKNOWN) [Suspect]
     Active Substance: TRASTUZUMAB
     Indication: METASTATIC SALIVARY GLAND CANCER
     Route: 065

REACTIONS (2)
  - Off label use [Unknown]
  - Death [Fatal]
